FAERS Safety Report 15600538 (Version 1)
Quarter: 2018Q4

REPORT INFORMATION
  Report Type: Spontaneous
  Country: FR (occurrence: FR)
  Receive Date: 20181109
  Receipt Date: 20181109
  Transmission Date: 20190205
  Serious: Yes (Other)
  Sender: FDA-Public Use
  Company Number: FR-REGENERON PHARMACEUTICALS, INC.-2018-43686

PATIENT

DRUGS (1)
  1. EYLEA [Suspect]
     Active Substance: AFLIBERCEPT
     Indication: AGE-RELATED MACULAR DEGENERATION
     Dosage: RIGHT EYE
     Dates: start: 201810

REACTIONS (7)
  - Age-related macular degeneration [Unknown]
  - Visual impairment [Unknown]
  - Visual impairment [Recovered/Resolved]
  - Drug ineffective [Unknown]
  - Diplopia [Unknown]
  - Altered visual depth perception [Unknown]
  - Diplopia [Not Recovered/Not Resolved]

NARRATIVE: CASE EVENT DATE: 201810
